FAERS Safety Report 15318505 (Version 1)
Quarter: 2018Q3

REPORT INFORMATION
  Report Type: Spontaneous
  Country: US (occurrence: US)
  Receive Date: 20180817
  Receipt Date: 20180817
  Transmission Date: 20181010
  Serious: Yes (Other)
  Sender: FDA-Public Use
  Company Number: None

PATIENT
  Age: 65 Year
  Sex: Female
  Weight: 56.25 kg

DRUGS (1)
  1. CAMBER WHITE WITH RP H 10/325 (ACETAMINOPHEN\OXYCODONE HYDROCHLORIDE) [Suspect]
     Active Substance: ACETAMINOPHEN\OXYCODONE HYDROCHLORIDE
     Indication: TOOTH ABSCESS
     Dosage: ?          QUANTITY:18 TABLET(S);?
     Route: 048
     Dates: start: 20180405, end: 20180407

REACTIONS (2)
  - Throat irritation [None]
  - Hyperhidrosis [None]

NARRATIVE: CASE EVENT DATE: 20180411
